FAERS Safety Report 18633775 (Version 2)
Quarter: 2021Q1

REPORT INFORMATION
  Report Type: Spontaneous
  Country: US (occurrence: US)
  Receive Date: 20201218
  Receipt Date: 20210119
  Transmission Date: 20210419
  Serious: Yes (Other)
  Sender: FDA-Public Use
  Company Number: US-TEVA-2020-US-1859480

PATIENT
  Age: 80 Year
  Sex: Male

DRUGS (18)
  1. VALSARTAN TEVA [Suspect]
     Active Substance: VALSARTAN
     Indication: HYPERTENSION
     Dosage: 320 MILLIGRAM DAILY; DOSAGE: 320MG/Q.D
     Route: 065
     Dates: start: 20151027, end: 20160124
  2. VALSARTAN ACTAVIS [Suspect]
     Active Substance: VALSARTAN
     Indication: HYPERTENSION
     Dosage: 320 MILLIGRAM DAILY; DOSAGE: 320 MG/Q.D
     Route: 065
     Dates: start: 20141014, end: 20150211
  3. DIOVAN [Suspect]
     Active Substance: VALSARTAN
     Dosage: 320 MILLIGRAM DAILY; DOSAGE: 320 MG/QD.
     Route: 065
     Dates: start: 20121012, end: 20140520
  4. METOPROLOL. [Concomitant]
     Active Substance: METOPROLOL
     Indication: HYPERTENSION
     Dosage: 50 MILLIGRAM DAILY; DOSAGE: 50MG/Q.D
     Dates: start: 20071016, end: 2012
  5. LASIX [Concomitant]
     Active Substance: FUROSEMIDE
  6. IMODIUM [Concomitant]
     Active Substance: LOPERAMIDE HYDROCHLORIDE
  7. VALSARTAN SOLCO [Suspect]
     Active Substance: VALSARTAN
     Indication: HYPERTENSION
     Dosage: 320 MILLIGRAM DAILY; DOSAGE: 320MG/QD
     Route: 065
     Dates: start: 20160419, end: 20170717
  8. METOPROLOL. [Concomitant]
     Active Substance: METOPROLOL
     Indication: ANGINA PECTORIS
  9. LIPITOR [Concomitant]
     Active Substance: ATORVASTATIN CALCIUM
     Indication: HYPERTENSION
  10. VALSARTAN ACTAVIS [Suspect]
     Active Substance: VALSARTAN
     Dosage: 320 MILLIGRAM DAILY; DOSAGE: 320 MG/QD.
     Route: 065
     Dates: start: 20150211, end: 20151015
  11. BABY ASPIRIN [Concomitant]
     Active Substance: ASPIRIN
     Indication: HYPERTENSION
  12. VALSARTAN OHM [Suspect]
     Active Substance: VALSARTAN
     Indication: HYPERTENSION
     Dosage: 320 MILLIGRAM DAILY; DOSAGE: 320MG/QD
     Route: 065
     Dates: start: 20140715, end: 20150306
  13. DIOVAN [Suspect]
     Active Substance: VALSARTAN
     Dosage: 320 MILLIGRAM DAILY; DOSAGE: 320 MG/QD.
     Route: 065
     Dates: start: 20120626, end: 20120912
  14. PANTOPRAZOLE SODIUM. [Concomitant]
     Active Substance: PANTOPRAZOLE SODIUM
     Indication: UNDERWEIGHT
  15. DIOVAN [Suspect]
     Active Substance: VALSARTAN
     Indication: HYPERTENSION
     Dosage: 320 MILLIGRAM DAILY; DOSAGE: 320 MG/QD.
     Route: 065
     Dates: start: 20070424, end: 20111212
  16. CREON [Concomitant]
     Active Substance: PANCRELIPASE AMYLASE\PANCRELIPASE LIPASE\PANCRELIPASE PROTEASE
  17. VALSARTAN OHM [Suspect]
     Active Substance: VALSARTAN
     Dosage: 320 MILLIGRAM DAILY; DOSAGE: 320MG/QD
     Route: 065
     Dates: start: 20160617, end: 20160915
  18. ASPIRIN. [Concomitant]
     Active Substance: ASPIRIN
     Indication: CORONARY ARTERY DISEASE
     Dosage: DOSAGE: 80MG/DAY
     Dates: start: 2007

REACTIONS (1)
  - Ductal adenocarcinoma of pancreas [Unknown]
